FAERS Safety Report 8560757-5 (Version None)
Quarter: 2012Q3

REPORT INFORMATION
  Report Type: 
  Country: None (occurrence: None)
  Receive Date: 20120802
  Receipt Date: 20120724
  Transmission Date: 20120928
  Serious: Yes (Other)
  Sender: FDA-Public Use
  Company Number: US-JNJFOC-20120713084

PATIENT
  Sex: Female

DRUGS (4)
  1. TYLENOL (CAPLET) [Concomitant]
     Indication: PREMEDICATION
     Route: 065
  2. ZYRTEC [Concomitant]
     Indication: PREMEDICATION
     Route: 065
  3. REMICADE [Suspect]
     Indication: PRODUCT USED FOR UNKNOWN INDICATION
     Route: 042
  4. REMICADE [Suspect]
     Route: 042
     Dates: start: 20120718

REACTIONS (5)
  - FEELING ABNORMAL [None]
  - SENSATION OF HEAVINESS [None]
  - INFUSION RELATED REACTION [None]
  - DIZZINESS [None]
  - MIGRAINE [None]
